FAERS Safety Report 7448297-8 (Version None)
Quarter: 2011Q2

REPORT INFORMATION
  Report Type: 
  Country: None (occurrence: None)
  Receive Date: 20110429
  Receipt Date: 20110421
  Transmission Date: 20111010
  Serious: Yes (Other)
  Sender: FDA-Public Use
  Company Number: CHPA2011US05799

PATIENT
  Age: 26 Year
  Sex: Male

DRUGS (3)
  1. NEXIUM [Concomitant]
     Dosage: UNK, UNK
  2. MAALOX ADV MAXIMUM STRENGTH ANTACID/ANTIGAS [Suspect]
     Indication: FLATULENCE
     Dosage: UNK, UNK
     Route: 048
  3. DRUG THERAPY NOS [Concomitant]
     Dosage: UNK, UNK

REACTIONS (3)
  - GASTRIC OPERATION [None]
  - INCORRECT DOSE ADMINISTERED [None]
  - OVERDOSE [None]
